FAERS Safety Report 13252330 (Version 1)
Quarter: 2017Q1

REPORT INFORMATION
  Report Type: Other
  Country: FR (occurrence: FR)
  Receive Date: 20170220
  Receipt Date: 20170220
  Transmission Date: 20170428
  Serious: Yes (Other)
  Sender: FDA-Public Use
  Company Number: FR-ALSI-201500041

PATIENT
  Age: 81 Year
  Sex: Male

DRUGS (1)
  1. MEDICAL OXYGEN [Suspect]
     Active Substance: OXYGEN
     Indication: PRODUCT USED FOR UNKNOWN INDICATION
     Route: 055
     Dates: start: 20150114

REACTIONS (4)
  - Underdose [Unknown]
  - Oxygen saturation decreased [None]
  - Cyanosis [Unknown]
  - Product quality issue [None]
